FAERS Safety Report 5386548-4 (Version None)
Quarter: 2007Q3

REPORT INFORMATION
  Report Type: 
  Country: None (occurrence: None)
  Receive Date: 20070713
  Receipt Date: 20070709
  Transmission Date: 20080115
  Serious: Yes (Life-Threatening)
  Sender: FDA-Public Use
  Company Number: FR-ASTRAZENECA-2007CG01036

PATIENT
  Age: 20724 Day
  Sex: Male

DRUGS (8)
  1. DIPRIVAN [Suspect]
     Indication: ANAESTHESIA
     Route: 042
     Dates: start: 20070326, end: 20070326
  2. NIMBEX [Suspect]
     Indication: ANAESTHESIA
     Route: 042
     Dates: start: 20070326, end: 20070326
  3. ULTIVA [Suspect]
     Indication: ANAESTHESIA
     Route: 042
     Dates: start: 20070326, end: 20070326
  4. MYOLASTAN [Suspect]
     Route: 048
     Dates: start: 20070323, end: 20070325
  5. DEBRIDAT [Suspect]
     Route: 042
     Dates: start: 20070323, end: 20070325
  6. PROFENID [Suspect]
     Route: 042
     Dates: start: 20070321, end: 20070325
  7. PERFALGAN [Suspect]
     Indication: ANALGESIA
     Route: 042
     Dates: start: 20070321, end: 20070325
  8. LOVENOX [Suspect]
     Indication: ANTICOAGULANT THERAPY
     Route: 058
     Dates: start: 20070321, end: 20070324

REACTIONS (4)
  - DERMATITIS BULLOUS [None]
  - HYPOTENSION [None]
  - RASH ERYTHEMATOUS [None]
  - STEVENS-JOHNSON SYNDROME [None]
